FAERS Safety Report 8073185-6 (Version None)
Quarter: 2012Q1

REPORT INFORMATION
  Report Type: 
  Country: None (occurrence: None)
  Receive Date: 20120126
  Receipt Date: 20120116
  Transmission Date: 20120608
  Serious: Yes (Death, Hospitalization, Other)
  Sender: FDA-Public Use
  Company Number: US-ELI_LILLY_AND_COMPANY-US201107003046

PATIENT
  Sex: Female

DRUGS (7)
  1. VITAMIN D [Concomitant]
  2. THYROID [Concomitant]
  3. CALCIUM [Concomitant]
  4. FORTEO [Suspect]
     Dosage: 20 UG, QD
     Route: 058
  5. FORTEO [Suspect]
     Dosage: 20 UG, QD
     Route: 058
  6. ASACOL [Concomitant]
  7. PREDNISONE TAB [Concomitant]

REACTIONS (6)
  - DEATH [None]
  - PNEUMONIA [None]
  - THROMBOSIS [None]
  - CONTUSION [None]
  - COUGH [None]
  - URINARY TRACT INFECTION [None]
